FAERS Safety Report 14509500 (Version 1)
Quarter: 2018Q1

REPORT INFORMATION
  Report Type: Report from Study
  Country: None (occurrence: US)
  Receive Date: 20180209
  Receipt Date: 20180209
  Transmission Date: 20180509
  Serious: Yes (Life-Threatening, Hospitalization)
  Sender: FDA-Public Use
  Company Number: US-ABBVIE-18K-163-2249594-00

PATIENT
  Age: 56 Year
  Sex: Male

DRUGS (19)
  1. LYRICA [Concomitant]
     Active Substance: PREGABALIN
     Indication: PRODUCT USED FOR UNKNOWN INDICATION
  2. ALLOPURINOL. [Concomitant]
     Active Substance: ALLOPURINOL
     Indication: PRODUCT USED FOR UNKNOWN INDICATION
  3. FLUOXETINE H [Concomitant]
     Indication: PRODUCT USED FOR UNKNOWN INDICATION
  4. HYDROCHLOROTH [Concomitant]
     Active Substance: HYDROCHLOROTHIAZIDE
     Indication: PRODUCT USED FOR UNKNOWN INDICATION
  5. PRAVACHOL [Concomitant]
     Active Substance: PRAVASTATIN SODIUM
     Indication: PRODUCT USED FOR UNKNOWN INDICATION
  6. METHOTREXATE. [Suspect]
     Active Substance: METHOTREXATE
     Indication: PRODUCT USED FOR UNKNOWN INDICATION
     Dosage: SOLUTION 250MG/10
     Route: 065
  7. BUPROPION HCL [Concomitant]
     Active Substance: BUPROPION HYDROCHLORIDE
     Indication: PRODUCT USED FOR UNKNOWN INDICATION
  8. OMEPRAZOLE. [Concomitant]
     Active Substance: OMEPRAZOLE
     Indication: PRODUCT USED FOR UNKNOWN INDICATION
  9. HUMIRA [Suspect]
     Active Substance: ADALIMUMAB
     Indication: PSORIATIC ARTHROPATHY
     Route: 058
     Dates: start: 20171031, end: 20180108
  10. HYDROCHLOROTH [Concomitant]
     Active Substance: HYDROCHLOROTHIAZIDE
     Indication: PRODUCT USED FOR UNKNOWN INDICATION
     Dosage: 2-352 MG
  11. GABAPENTIN. [Concomitant]
     Active Substance: GABAPENTIN
     Indication: PRODUCT USED FOR UNKNOWN INDICATION
  12. LEFLUNOMIDE. [Concomitant]
     Active Substance: LEFLUNOMIDE
     Indication: PRODUCT USED FOR UNKNOWN INDICATION
  13. TRIAMCINOLON [Concomitant]
     Indication: PRODUCT USED FOR UNKNOWN INDICATION
  14. VENTOLIN HFA [Concomitant]
     Active Substance: ALBUTEROL SULFATE
     Indication: PRODUCT USED FOR UNKNOWN INDICATION
     Dosage: AEROSOL 108/90
  15. ZOLPIDEM TAR [Concomitant]
     Indication: PRODUCT USED FOR UNKNOWN INDICATION
  16. PREDNISONE. [Suspect]
     Active Substance: PREDNISONE
     Indication: PRODUCT USED FOR UNKNOWN INDICATION
     Route: 065
  17. ANORO ELLIPTA EP [Concomitant]
     Indication: PRODUCT USED FOR UNKNOWN INDICATION
     Dosage: 62.5-25M
  18. LISINOPRIL. [Concomitant]
     Active Substance: LISINOPRIL
     Indication: PRODUCT USED FOR UNKNOWN INDICATION
  19. INDOMETHACIN. [Concomitant]
     Active Substance: INDOMETHACIN
     Indication: PRODUCT USED FOR UNKNOWN INDICATION

REACTIONS (6)
  - Apnoea [Recovered/Resolved]
  - Procedural complication [Recovered/Resolved]
  - Hypotension [Recovered/Resolved]
  - Infection parasitic [Recovered/Resolved]
  - Post procedural discharge [Not Recovered/Not Resolved]
  - Drug intolerance [Unknown]

NARRATIVE: CASE EVENT DATE: 2018
